FAERS Safety Report 14679158 (Version 3)
Quarter: 2018Q4

REPORT INFORMATION
  Report Type: Spontaneous
  Country: US (occurrence: US)
  Receive Date: 20180326
  Receipt Date: 20181005
  Transmission Date: 20190204
  Serious: No
  Sender: FDA-Public Use
  Company Number: US-PFIZER INC-2018120206

PATIENT
  Age: 42 Year
  Sex: Female

DRUGS (2)
  1. XELJANZ [Suspect]
     Active Substance: TOFACITINIB CITRATE
     Dosage: UNK
  2. XELJANZ XR [Suspect]
     Active Substance: TOFACITINIB CITRATE
     Dosage: 11 MG, DAILY

REACTIONS (12)
  - Myalgia [Unknown]
  - Anxiety [Unknown]
  - Contusion [Unknown]
  - Pain [Not Recovered/Not Resolved]
  - Fatigue [Unknown]
  - Nodule [Unknown]
  - Burning sensation [Unknown]
  - Dermatitis atopic [Unknown]
  - Weight decreased [Unknown]
  - Depression [Unknown]
  - Drug ineffective [Unknown]
  - Asthenia [Unknown]
